FAERS Safety Report 5122689-4 (Version None)
Quarter: 2006Q4

REPORT INFORMATION
  Report Type: 
  Country: None (occurrence: None)
  Receive Date: 20061004
  Receipt Date: 20060922
  Transmission Date: 20070319
  Serious: No
  Sender: FDA-Public Use
  Company Number: 2006-147870-NL

PATIENT
  Age: 48 Year
  Sex: Female

DRUGS (2)
  1. MIRTAZAPINE [Suspect]
     Indication: DEPRESSION
     Dosage: DF/30 MG, QD ORAL
     Route: 048
     Dates: start: 20020101, end: 20030101
  2. MIRTAZAPINE [Suspect]
     Indication: DEPRESSION
     Dosage: DF/30 MG, QD ORAL
     Route: 048
     Dates: start: 20060725, end: 20060829

REACTIONS (5)
  - BACK PAIN [None]
  - OEDEMA PERIPHERAL [None]
  - PRURITUS [None]
  - RASH MACULO-PAPULAR [None]
  - RESTLESS LEGS SYNDROME [None]
